FAERS Safety Report 5168557-3 (Version None)
Quarter: 2006Q4

REPORT INFORMATION
  Report Type: 
  Country: None (occurrence: None)
  Receive Date: 20061208
  Receipt Date: 20061204
  Transmission Date: 20070319
  Serious: Yes (Life-Threatening)
  Sender: FDA-Public Use
  Company Number: NZ-MERCK-0612NZL00014

PATIENT
  Age: 72 Year
  Sex: Male

DRUGS (1)
  1. ZETIA [Suspect]
     Indication: HYPERCHOLESTEROLAEMIA
     Route: 048
     Dates: start: 20050411, end: 20050507

REACTIONS (2)
  - MYOCARDIAL INFARCTION [None]
  - RECTAL HAEMORRHAGE [None]
